FAERS Safety Report 23519008 (Version 3)
Quarter: 2024Q3

REPORT INFORMATION
  Report Type: Spontaneous
  Country: US (occurrence: US)
  Receive Date: 20240213
  Receipt Date: 20240731
  Transmission Date: 20241017
  Serious: No
  Sender: TRAVERE THERAPEUTICS
  Company Number: US-TRAVERE-2024TVT00123

PATIENT
  Age: 58 Year
  Sex: Male

DRUGS (2)
  1. FILSPARI [Suspect]
     Active Substance: SPARSENTAN
     Indication: IgA nephropathy
     Route: 048
  2. FILSPARI [Suspect]
     Active Substance: SPARSENTAN
     Dosage: 200 MG 2 TABLETS DAILY (400MG)
     Route: 048
     Dates: start: 20240219

REACTIONS (5)
  - Abdominal discomfort [Recovered/Resolved]
  - Nasopharyngitis [Unknown]
  - Product administration interrupted [Unknown]
  - Bruxism [Unknown]
  - Product dose omission issue [Unknown]

NARRATIVE: CASE EVENT DATE: 20240206
